FAERS Safety Report 7392240-7 (Version None)
Quarter: 2011Q2

REPORT INFORMATION
  Report Type: 
  Country: None (occurrence: None)
  Receive Date: 20110404
  Receipt Date: 20110329
  Transmission Date: 20111010
  Serious: Yes (Death, Hospitalization, Other)
  Sender: FDA-Public Use
  Company Number: GB-MERCK-1103GBR00114

PATIENT
  Age: 81 Year
  Sex: Male

DRUGS (5)
  1. FLOXACILLIN [Concomitant]
     Indication: OSTEOMYELITIS
     Route: 065
  2. FLOXACILLIN [Concomitant]
     Indication: DIABETIC FOOT
     Route: 065
  3. FUSIDATE SODIUM [Suspect]
     Indication: DIABETIC FOOT
     Route: 048
  4. ZOCOR [Suspect]
     Route: 048
  5. FUSIDATE SODIUM [Suspect]
     Indication: OSTEOMYELITIS
     Route: 048

REACTIONS (4)
  - DRUG INTERACTION [None]
  - RENAL FAILURE ACUTE [None]
  - RHABDOMYOLYSIS [None]
  - BLOOD CREATINE PHOSPHOKINASE INCREASED [None]
